FAERS Safety Report 11495820 (Version 1)
Quarter: 2015Q3

REPORT INFORMATION
  Report Type: Spontaneous
  Country: US (occurrence: US)
  Receive Date: 20150911
  Receipt Date: 20150911
  Transmission Date: 20151125
  Serious: No
  Sender: FDA-Public Use
  Company Number: US-PFIZER INC-2015301446

PATIENT
  Age: 52 Year
  Sex: Female
  Weight: 115.2 kg

DRUGS (6)
  1. TRAMADOL. [Suspect]
     Active Substance: TRAMADOL
     Dosage: UNK
  2. CYMBALTA [Suspect]
     Active Substance: DULOXETINE HYDROCHLORIDE
     Dosage: UNK
  3. CODEINE [Suspect]
     Active Substance: CODEINE
     Dosage: UNK
  4. MYRBETRIQ [Suspect]
     Active Substance: MIRABEGRON
  5. LYRICA [Suspect]
     Active Substance: PREGABALIN
     Dosage: UNK
  6. VESICARE [Suspect]
     Active Substance: SOLIFENACIN SUCCINATE

REACTIONS (1)
  - Drug hypersensitivity [Not Recovered/Not Resolved]

NARRATIVE: CASE EVENT DATE: 2005
